FAERS Safety Report 17004954 (Version 1)
Quarter: 2019Q4

REPORT INFORMATION
  Report Type: Spontaneous
  Country: CA (occurrence: CA)
  Receive Date: 20191107
  Receipt Date: 20191107
  Transmission Date: 20200122
  Serious: Yes (Hospitalization)
  Sender: FDA-Public Use
  Company Number: CA-PFIZER INC-2019475858

PATIENT
  Age: 54 Year
  Sex: Female

DRUGS (1)
  1. DOXORUBICIN HCL [Suspect]
     Active Substance: DOXORUBICIN HYDROCHLORIDE
     Indication: BREAST CANCER METASTATIC
     Dosage: UNK, WEEKLY (DOXORUBICIN WEEKLY, CUMULATIVE DOSE OF 450 MG/M^2)

REACTIONS (2)
  - Congestive cardiomyopathy [Recovering/Resolving]
  - Toxicity to various agents [Recovering/Resolving]
